FAERS Safety Report 7007484-3 (Version None)
Quarter: 2010Q3

REPORT INFORMATION
  Report Type: 
  Country: None (occurrence: None)
  Receive Date: 20100914
  Receipt Date: 20100904
  Transmission Date: 20110219
  Serious: Yes (Other)
  Sender: FDA-Public Use
  Company Number: 2010SP047791

PATIENT
  Age: 19 Year
  Sex: Female

DRUGS (1)
  1. IMPLANON [Suspect]
     Indication: CONTRACEPTION
     Dosage: 68 MG; SUBD
     Route: 059
     Dates: start: 20080101, end: 20100801

REACTIONS (16)
  - ANAEMIA [None]
  - COAGULATION TIME ABNORMAL [None]
  - CONDITION AGGRAVATED [None]
  - DIZZINESS [None]
  - ERYTHEMA [None]
  - FATIGUE [None]
  - HAEMATOMA [None]
  - HEADACHE [None]
  - MENOMETRORRHAGIA [None]
  - NAUSEA [None]
  - OEDEMA PERIPHERAL [None]
  - PAIN IN EXTREMITY [None]
  - PETECHIAE [None]
  - PLATELET COUNT DECREASED [None]
  - PROTEINURIA [None]
  - RHEUMATOID FACTOR INCREASED [None]
